FAERS Safety Report 6407836-6 (Version None)
Quarter: 2009Q4

REPORT INFORMATION
  Report Type: 
  Country: None (occurrence: None)
  Receive Date: 20091015
  Receipt Date: 20091005
  Transmission Date: 20100525
  Serious: Yes (Hospitalization)
  Sender: FDA-Public Use
  Company Number: 2009-03546

PATIENT
  Age: 68 Year
  Sex: Female
  Weight: 76.8 kg

DRUGS (4)
  1. VELCADE [Suspect]
     Indication: CHRONIC LYMPHOCYTIC LEUKAEMIA
     Dosage: 1.3 MG/M2,  INTRAVENOUS
     Route: 042
     Dates: start: 20090803, end: 20090824
  2. CYCLOPHOSPHAMIDE [Suspect]
     Indication: CHRONIC LYMPHOCYTIC LEUKAEMIA
     Dosage: 550 MG
     Dates: start: 20090420, end: 20090820
  3. RITUXIMAB(RITUXIMAB) INJECTION, 375MG/M2 [Suspect]
     Indication: CHRONIC LYMPHOCYTIC LEUKAEMIA
     Dosage: 698 MG
     Dates: start: 20090420, end: 20090817
  4. DEXAMETHASONE [Concomitant]
     Indication: CHRONIC LYMPHOCYTIC LEUKAEMIA
     Dosage: 40 MG
     Dates: start: 20090420, end: 20090825

REACTIONS (4)
  - MENINGITIS VIRAL [None]
  - MYELITIS [None]
  - PERIPHERAL SENSORY NEUROPATHY [None]
  - PYREXIA [None]
